FAERS Safety Report 6767343-8 (Version None)
Quarter: 2010Q2

REPORT INFORMATION
  Report Type: 
  Country: None (occurrence: None)
  Receive Date: 20100610
  Receipt Date: 20100525
  Transmission Date: 20101027
  Serious: Yes (Other)
  Sender: FDA-Public Use
  Company Number: JPI-P-010813

PATIENT
  Age: 59 Year
  Sex: Female

DRUGS (2)
  1. XYREM [Suspect]
     Indication: INSOMNIA
     Dosage: 4.5 GM (2.25 GM,2 IN 1 D),ORAL; 9 GM (4.5 GM, 2 IN 1 D),ORAL
     Route: 048
     Dates: start: 20100402, end: 20100101
  2. XYREM [Suspect]
     Indication: INSOMNIA
     Dosage: 4.5 GM (2.25 GM,2 IN 1 D),ORAL; 9 GM (4.5 GM, 2 IN 1 D),ORAL
     Route: 048
     Dates: start: 20100101

REACTIONS (1)
  - ARTHROPATHY [None]
